FAERS Safety Report 26172130 (Version 1)
Quarter: 2025Q4

REPORT INFORMATION
  Report Type: Report from Study
  Country: CA (occurrence: CA)
  Receive Date: 20251218
  Receipt Date: 20251218
  Transmission Date: 20260117
  Serious: Yes (Disabling)
  Sender: NOVARTIS
  Company Number: CA-002147023-NVSC2025CA132250

PATIENT
  Age: 59 Year
  Sex: Female

DRUGS (3)
  1. KISQALI [Suspect]
     Active Substance: RIBOCICLIB SUCCINATE
     Indication: Breast cancer metastatic
     Dosage: 600 MG, QD
     Route: 048
     Dates: start: 20250722
  2. KISQALI [Suspect]
     Active Substance: RIBOCICLIB SUCCINATE
     Dosage: 600 MG, QD
     Route: 048
     Dates: start: 20250826, end: 20250916
  3. KISQALI [Suspect]
     Active Substance: RIBOCICLIB SUCCINATE
     Dosage: 600 MG, QD
     Route: 048
     Dates: end: 20251021

REACTIONS (10)
  - Bone pain [Recovered/Resolved]
  - Neutrophil count decreased [Recovering/Resolving]
  - Lymphocyte count decreased [Unknown]
  - Chills [Recovered/Resolved]
  - White blood cell count abnormal [Unknown]
  - Arthralgia [Recovered/Resolved]
  - Osteitis [Recovered/Resolved]
  - Ear pain [Recovered/Resolved]
  - Pain in jaw [Recovered/Resolved]
  - Drug ineffective [Unknown]

NARRATIVE: CASE EVENT DATE: 20250813
